FAERS Safety Report 9218179 (Version 1)
Quarter: 2013Q2

REPORT INFORMATION
  Report Type: Spontaneous
  Country: GB (occurrence: GB)
  Receive Date: 20130408
  Receipt Date: 20130408
  Transmission Date: 20140414
  Serious: Yes (Disabling, Other)
  Sender: FDA-Public Use
  Company Number: PHHY2013GB032188

PATIENT
  Age: 62 Year
  Sex: Female
  Weight: 68.3 kg

DRUGS (5)
  1. ANASTROZOLE [Suspect]
     Indication: BREAST CANCER
     Dosage: 1 MG, UNK
     Route: 048
     Dates: start: 20110826, end: 20130310
  2. ADCAL-D3 [Concomitant]
  3. SIMVASTATIN [Concomitant]
  4. CLOPIDOGREL [Concomitant]
  5. LETROZOLE [Concomitant]

REACTIONS (5)
  - Osteoporosis [Not Recovered/Not Resolved]
  - Vertigo positional [Not Recovered/Not Resolved]
  - Carpal tunnel syndrome [Not Recovered/Not Resolved]
  - Temporomandibular joint syndrome [Not Recovered/Not Resolved]
  - Trigger finger [Not Recovered/Not Resolved]
